FAERS Safety Report 5788939-6 (Version None)
Quarter: 2008Q2

REPORT INFORMATION
  Report Type: 
  Country: None (occurrence: None)
  Receive Date: 20080623
  Receipt Date: 20080610
  Transmission Date: 20081010
  Serious: Yes (Other)
  Sender: FDA-Public Use
  Company Number: 2008-02112

PATIENT
  Age: 60 Year
  Sex: Male
  Weight: 69 kg

DRUGS (6)
  1. VELCADE [Suspect]
     Indication: MULTIPLE MYELOMA
     Dosage: 2.2 MG, INTRAVENOUS
     Route: 042
     Dates: start: 20070309, end: 20070409
  2. DEXAMETHASONE TAB [Suspect]
     Indication: MULTIPLE MYELOMA
     Dosage: 20 MG, INTRAVENOUS
     Route: 042
     Dates: start: 20070309, end: 20070410
  3. MAG-LAX (MAGNESIUM HYDROXIDE, PARAFFIN, LIQUID) [Concomitant]
  4. SULFAMETHOXAZOLE AND TRIMETHOPRIM [Concomitant]
  5. FAMOTIDINE [Concomitant]
  6. LENDORM [Concomitant]

REACTIONS (5)
  - ERYTHEMA MULTIFORME [None]
  - INSOMNIA [None]
  - PLATELET COUNT DECREASED [None]
  - PYREXIA [None]
  - WHITE BLOOD CELL COUNT DECREASED [None]
